FAERS Safety Report 7373274-5 (Version None)
Quarter: 2011Q1

REPORT INFORMATION
  Report Type: 
  Country: None (occurrence: None)
  Receive Date: 20110324
  Receipt Date: 20110323
  Transmission Date: 20110831
  Serious: Yes (Other)
  Sender: FDA-Public Use
  Company Number: ZA-PFIZER INC-2011040387

PATIENT
  Age: 40 Year
  Sex: Male

DRUGS (7)
  1. LYRICA [Suspect]
     Indication: DIABETIC NEUROPATHY
     Dosage: 75 MG, 1X/DAY AT NIGHT
     Route: 048
     Dates: start: 20090701
  2. PURICOS [Concomitant]
     Dosage: UNK
     Route: 048
  3. METFORMIN HYDROCHLORIDE [Concomitant]
     Dosage: UNK
     Route: 048
     Dates: start: 20100101
  4. DISPRIN [Concomitant]
     Dosage: UNK
     Route: 048
  5. HUMALOG [Concomitant]
     Dosage: UNK
     Route: 058
     Dates: start: 20100101
  6. LANTUS [Concomitant]
     Dosage: UNK
     Route: 058
     Dates: start: 20110101
  7. GLUCOPHAGE [Concomitant]
     Dosage: UNK
     Route: 048
     Dates: start: 20100101

REACTIONS (3)
  - BLOOD PRESSURE INCREASED [None]
  - FATIGUE [None]
  - STRESS [None]
